FAERS Safety Report 8852134 (Version 5)
Quarter: 2013Q4

REPORT INFORMATION
  Report Type: Spontaneous
  Country: US (occurrence: US)
  Receive Date: 20121022
  Receipt Date: 20131014
  Transmission Date: 20140711
  Serious: Yes (Hospitalization, Other)
  Sender: FDA-Public Use
  Company Number: US-009507513-1210USA005103

PATIENT
  Sex: Female
  Weight: 51.25 kg

DRUGS (5)
  1. FOSAMAX [Suspect]
     Indication: OSTEOPOROSIS
     Dosage: UNK UNK, QW
     Route: 048
     Dates: start: 200802
  2. CORTICOSTEROIDS (UNSPECIFIED) [Concomitant]
     Indication: DRUG HYPERSENSITIVITY
  3. CORTICOSTEROIDS (UNSPECIFIED) [Concomitant]
     Indication: ARTHRALGIA
  4. RECLAST [Concomitant]
     Indication: OSTEOPOROSIS
     Dosage: UNK
     Route: 042
     Dates: start: 20060729, end: 20090708
  5. MIACALCIN [Concomitant]
     Indication: OSTEOPOROSIS
     Dosage: UNK
     Route: 045
     Dates: start: 1996

REACTIONS (43)
  - Femur fracture [Unknown]
  - Intramedullary rod insertion [Unknown]
  - Renal cell carcinoma [Unknown]
  - Renal lesion excision [Unknown]
  - Liposarcoma [Unknown]
  - Rotator cuff repair [Unknown]
  - Osteonecrosis [Unknown]
  - Femur fracture [Recovered/Resolved]
  - Low turnover osteopathy [Unknown]
  - Hypothyroidism [Unknown]
  - Hypoparathyroidism [Unknown]
  - Peripheral arterial occlusive disease [Unknown]
  - Osteopenia [Unknown]
  - Joint injury [Unknown]
  - Dystrophic calcification [Unknown]
  - Osteoarthritis [Unknown]
  - Osteoporosis [Unknown]
  - Fibromyalgia [Unknown]
  - Myofascial pain syndrome [Unknown]
  - Bursitis [Unknown]
  - Hypertension [Unknown]
  - Irritable bowel syndrome [Unknown]
  - Hyperlipidaemia [Unknown]
  - Pain [Unknown]
  - Asthma [Unknown]
  - Chronic obstructive pulmonary disease [Unknown]
  - Chest pain [Unknown]
  - Hypertension [Unknown]
  - Osteoarthritis [Unknown]
  - Rib fracture [Unknown]
  - Sternal fracture [Unknown]
  - Lower limb fracture [Unknown]
  - Arthritis [Unknown]
  - Rotator cuff syndrome [Unknown]
  - Chondropathy [Unknown]
  - Arthroscopic surgery [Unknown]
  - Foot fracture [Recovered/Resolved]
  - Osteopenia [Unknown]
  - Foot fracture [Recovering/Resolving]
  - Pyelocaliectasis [Not Recovered/Not Resolved]
  - Gastrooesophageal reflux disease [Unknown]
  - Nausea [Unknown]
  - Dizziness [Unknown]
